FAERS Safety Report 7605292-3 (Version None)
Quarter: 2011Q3

REPORT INFORMATION
  Report Type: 
  Country: None (occurrence: None)
  Receive Date: 20110705
  Receipt Date: 20110621
  Transmission Date: 20111222
  Serious: Yes (Other)
  Sender: FDA-Public Use
  Company Number: FK201101265

PATIENT
  Age: 32 Year
  Sex: Male

DRUGS (4)
  1. DOXORUBICIN HCL [Suspect]
     Indication: HODGKIN'S DISEASE
  2. VINBLASTINE SULFATE [Suspect]
     Indication: HODGKIN'S DISEASE
  3. BLEOMYCIN SULFATE [Suspect]
     Indication: HODGKIN'S DISEASE
  4. DACARBAZINE [Suspect]
     Indication: HODGKIN'S DISEASE

REACTIONS (5)
  - PALATAL DISORDER [None]
  - BLISTER [None]
  - HAEMORRHAGE [None]
  - ACUTE MYELOID LEUKAEMIA [None]
  - PYREXIA [None]
